FAERS Safety Report 6360747-7 (Version None)
Quarter: 2009Q3

REPORT INFORMATION
  Report Type: 
  Country: None (occurrence: None)
  Receive Date: 20090918
  Receipt Date: 20090914
  Transmission Date: 20100115
  Serious: No
  Sender: FDA-Public Use
  Company Number: US-JNJFOC-20090904669

PATIENT
  Sex: Male
  Weight: 133.81 kg

DRUGS (11)
  1. FENTANYL TRANSDERMAL SYSTEM [Suspect]
     Indication: BACK PAIN
     Route: 062
  2. ASPIRIN [Concomitant]
     Indication: CARDIAC DISORDER
     Route: 048
  3. VICODIN [Concomitant]
     Indication: PAIN
     Dosage: 5MG/500MG AS NEEDED
  4. METOPROLOL TARTRATE [Concomitant]
     Indication: BLOOD PRESSURE
     Route: 048
  5. COZAAR [Concomitant]
     Indication: BLOOD PRESSURE
     Route: 048
  6. METFORMIN HCL [Concomitant]
     Indication: DIABETES MELLITUS
     Route: 048
  7. LANTUS [Concomitant]
     Indication: DIABETES MELLITUS
     Route: 058
  8. OMEPRAZOLE [Concomitant]
     Indication: GASTROOESOPHAGEAL REFLUX DISEASE
     Route: 048
  9. FLOMAX [Concomitant]
     Indication: POLLAKIURIA
     Route: 048
  10. LIPITOR [Concomitant]
     Indication: CARDIAC DISORDER
     Route: 048
  11. NOVOLOG [Concomitant]
     Indication: DIABETES MELLITUS
     Dosage: 30 UNITS
     Route: 058

REACTIONS (4)
  - DEVICE ADHESION ISSUE [None]
  - INAPPROPRIATE SCHEDULE OF DRUG ADMINISTRATION [None]
  - POOR QUALITY SLEEP [None]
  - WRONG TECHNIQUE IN DRUG USAGE PROCESS [None]
